FAERS Safety Report 4757972-5 (Version None)
Quarter: 2005Q3

REPORT INFORMATION
  Report Type: 
  Country: None (occurrence: None)
  Receive Date: 20050826
  Receipt Date: 20040913
  Transmission Date: 20060218
  Serious: Yes (Hospitalization)
  Sender: FDA-Public Use
  Company Number: CIP04001467

PATIENT
  Age: 48 Year
  Sex: Male

DRUGS (1)
  1. ASACOL [Suspect]
     Indication: CROHN'S DISEASE
     Dosage: 800 MG THREE TIMES DAILY, ORAL
     Route: 048
     Dates: start: 20040524, end: 20040615

REACTIONS (2)
  - CHEST PAIN [None]
  - MYOCARDITIS [None]
